FAERS Safety Report 11934493 (Version 7)
Quarter: 2017Q4

REPORT INFORMATION
  Report Type: Report from Study
  Country: CA (occurrence: CA)
  Receive Date: 20160121
  Receipt Date: 20171213
  Transmission Date: 20180320
  Serious: Yes (Other)
  Sender: FDA-Public Use
  Company Number: PHHY2015CA152752

PATIENT
  Age: 42 Year
  Sex: Male

DRUGS (21)
  1. ADVAIR HFA [Concomitant]
     Active Substance: FLUTICASONE PROPIONATE\SALMETEROL XINAFOATE
     Indication: PRODUCT USED FOR UNKNOWN INDICATION
     Dosage: (50/500 UG), BID
     Route: 065
  2. VITAMIN K//MENADIONE [Concomitant]
     Indication: PRODUCT USED FOR UNKNOWN INDICATION
     Route: 065
  3. PULMOZYME [Concomitant]
     Active Substance: DORNASE ALFA
     Indication: PRODUCT USED FOR UNKNOWN INDICATION
     Route: 065
  4. XOLAIR [Suspect]
     Active Substance: OMALIZUMAB
     Dosage: UNK
     Route: 058
     Dates: start: 20171128
  5. VITAMIN D [Concomitant]
     Active Substance: CHOLECALCIFEROL
     Indication: PRODUCT USED FOR UNKNOWN INDICATION
     Dosage: UNK
     Route: 065
  6. VENTOLIN [Concomitant]
     Active Substance: ALBUTEROL SULFATE
     Indication: PRODUCT USED FOR UNKNOWN INDICATION
     Dosage: 100 UG, TID
     Route: 065
  7. ZITHROMAX [Concomitant]
     Active Substance: AZITHROMYCIN DIHYDRATE
     Indication: PRODUCT USED FOR UNKNOWN INDICATION
     Route: 065
  8. TOBI PODHALER [Suspect]
     Active Substance: TOBRAMYCIN
     Indication: ASTHMA
     Dosage: 4 DF (PUFFS), BID
     Route: 055
     Dates: start: 2013
  9. XOLAIR [Suspect]
     Active Substance: OMALIZUMAB
     Dosage: UNK
     Route: 058
     Dates: start: 20160907
  10. XOLAIR [Suspect]
     Active Substance: OMALIZUMAB
     Indication: ASTHMA
     Dosage: 375 MG, BIW
     Route: 058
     Dates: start: 20151119
  11. XOLAIR [Suspect]
     Active Substance: OMALIZUMAB
     Dosage: UNK
     Route: 042
     Dates: start: 20160531
  12. XOLAIR [Suspect]
     Active Substance: OMALIZUMAB
     Dosage: UNK
     Route: 058
     Dates: start: 20160920
  13. XOLAIR [Suspect]
     Active Substance: OMALIZUMAB
     Dosage: UNK
     Route: 058
     Dates: start: 20161005
  14. VITAMIN E [Concomitant]
     Active Substance: .ALPHA.-TOCOPHEROL
     Indication: PRODUCT USED FOR UNKNOWN INDICATION
     Dosage: UNK
     Route: 065
  15. ULORIC [Concomitant]
     Active Substance: FEBUXOSTAT
     Indication: PRODUCT USED FOR UNKNOWN INDICATION
     Route: 065
  16. XOLAIR [Suspect]
     Active Substance: OMALIZUMAB
     Dosage: UNK
     Route: 058
     Dates: start: 20160223
  17. XOLAIR [Suspect]
     Active Substance: OMALIZUMAB
     Dosage: UNK
     Route: 058
     Dates: start: 20160405
  18. PULMICORT TURBUHALER [Concomitant]
     Active Substance: BUDESONIDE
     Indication: PRODUCT USED FOR UNKNOWN INDICATION
     Dosage: 400 UG, TID
     Route: 065
  19. PREDNISONE. [Concomitant]
     Active Substance: PREDNISONE
     Indication: PRODUCT USED FOR UNKNOWN INDICATION
     Dosage: (25/125 UG), QD
     Route: 065
  20. XOLAIR [Suspect]
     Active Substance: OMALIZUMAB
     Dosage: UNK
     Route: 058
     Dates: start: 20160517
  21. CREON [Concomitant]
     Active Substance: PANCRELIPASE AMYLASE\PANCRELIPASE LIPASE\PANCRELIPASE PROTEASE
     Indication: PRODUCT USED FOR UNKNOWN INDICATION
     Dosage: 25 OT, UNK
     Route: 065

REACTIONS (11)
  - Pyrexia [Unknown]
  - Cough [Not Recovered/Not Resolved]
  - Rhonchi [Unknown]
  - Nephrolithiasis [Unknown]
  - Sputum discoloured [Recovering/Resolving]
  - Product use in unapproved indication [Unknown]
  - Chest discomfort [Unknown]
  - Lower respiratory tract infection [Unknown]
  - Productive cough [Recovering/Resolving]
  - Inflammation [Unknown]
  - Rubber sensitivity [Unknown]

NARRATIVE: CASE EVENT DATE: 20160217
